FAERS Safety Report 12010347 (Version 1)
Quarter: 2016Q1

REPORT INFORMATION
  Report Type: Spontaneous
  Country: US (occurrence: None)
  Receive Date: 20160204
  Receipt Date: 20160204
  Transmission Date: 20160526
  Serious: No
  Sender: FDA-Public Use
  Company Number: None

PATIENT
  Age: 62 Year
  Sex: Female
  Weight: 77.11 kg

DRUGS (19)
  1. CLONOPIN [Concomitant]
     Active Substance: CLONAZEPAM
  2. MELOXICAM. [Concomitant]
     Active Substance: MELOXICAM
  3. ACETAMINOPHEN. [Concomitant]
     Active Substance: ACETAMINOPHEN
  4. LOPERIMIDE [Concomitant]
  5. CALCIUM [Concomitant]
     Active Substance: CALCIUM
  6. OCUVITE [Concomitant]
     Active Substance: VITAMINS
  7. VIMPAT [Concomitant]
     Active Substance: LACOSAMIDE
  8. OMEPRAZOLE. [Concomitant]
     Active Substance: OMEPRAZOLE
  9. PENNSAID [Suspect]
     Active Substance: DICLOFENAC SODIUM
     Indication: ARTHRALGIA
     Dosage: 2 PUMPS FROM BOTTLE  TWICE DAILY  APPLIED TO A SURFACE, USUALLY THE SKIN
     Dates: start: 20160107, end: 20160123
  10. LAMOTRIGINE. [Concomitant]
     Active Substance: LAMOTRIGINE
  11. LEVOTHYROXIN [Concomitant]
     Active Substance: LEVOTHYROXINE
  12. FLUOXETINE [Concomitant]
     Active Substance: FLUOXETINE HYDROCHLORIDE
  13. GAVISCON [Concomitant]
     Active Substance: ALUMINUM HYDROXIDE\MAGNESIUM CARBONATE
  14. PREMARIN [Concomitant]
     Active Substance: ESTROGENS, CONJUGATED
  15. ELMIRON [Concomitant]
     Active Substance: PENTOSAN POLYSULFATE SODIUM
  16. OXYBUTININ [Concomitant]
     Active Substance: OXYBUTYNIN
  17. HYDROCODONE BITARTRATE AND ACETAMINOPHEN [Concomitant]
     Active Substance: ACETAMINOPHEN\HYDROCODONE BITARTRATE
  18. PRAMIPEXOLE. [Concomitant]
     Active Substance: PRAMIPEXOLE
  19. MULTIVITAMIN [Concomitant]
     Active Substance: VITAMINS

REACTIONS (3)
  - Dermatitis [None]
  - Drug ineffective [None]
  - Skin fissures [None]

NARRATIVE: CASE EVENT DATE: 20160119
